FAERS Safety Report 6512835-X (Version None)
Quarter: 2009Q4

REPORT INFORMATION
  Report Type: 
  Country: None (occurrence: None)
  Receive Date: 20091217
  Receipt Date: 20091207
  Transmission Date: 20100525
  Serious: Yes (Other)
  Sender: FDA-Public Use
  Company Number: 2009EK003954

PATIENT
  Sex: Male

DRUGS (1)
  1. CARDENE [Suspect]
     Indication: DRUG USE FOR UNKNOWN INDICATION
     Dosage: 20 MG; IV
     Route: 042

REACTIONS (3)
  - DRUG ADMINISTRATION ERROR [None]
  - EXTRAVASATION [None]
  - SKIN EXFOLIATION [None]
